FAERS Safety Report 6185478-8 (Version None)
Quarter: 2009Q2

REPORT INFORMATION
  Report Type: 
  Country: None (occurrence: None)
  Receive Date: 20090511
  Receipt Date: 20090429
  Transmission Date: 20091009
  Serious: Yes (Other)
  Sender: FDA-Public Use
  Company Number: PHEH2008US07606

PATIENT
  Sex: Female
  Weight: 70.9 kg

DRUGS (20)
  1. AREDIA [Suspect]
     Dosage: ONCE MONTHLY
     Route: 042
     Dates: start: 20020101
  2. ZOMETA [Suspect]
     Dosage: 4MG
  3. OXYCONTIN [Concomitant]
     Indication: PAIN
  4. VICODIN [Concomitant]
  5. RYTHMOL [Concomitant]
     Dosage: 50 MG, 2QD
  6. IRON [Concomitant]
     Dosage: 2 QD
  7. VIOXX [Concomitant]
     Dosage: 2 QD
  8. HYDROCODONE BITARTRATE [Concomitant]
     Indication: PAIN
  9. INTERFERON [Concomitant]
     Indication: MULTIPLE MYELOMA
  10. NEURONTIN [Concomitant]
  11. HEMODIALYSIS [Concomitant]
     Indication: MULTIPLE MYELOMA
  12. ASPIRIN [Concomitant]
  13. PAMELOR [Concomitant]
     Indication: LIMB DISCOMFORT
  14. EPOGEN [Concomitant]
  15. RENAGEL [Concomitant]
  16. RENA-VITE [Concomitant]
  17. FUROSEMIDE [Concomitant]
  18. POTASSIUM CHLORIDE [Concomitant]
  19. ARANESP [Concomitant]
  20. DEXAMETHASONE [Concomitant]

REACTIONS (36)
  - ABSCESS DRAINAGE [None]
  - ABSCESS ORAL [None]
  - ARTERIOVENOUS FISTULA [None]
  - ARTHRALGIA [None]
  - BACK DISORDER [None]
  - BACK PAIN [None]
  - BONE DISORDER [None]
  - DEHYDRATION [None]
  - FALL [None]
  - HYPOAESTHESIA [None]
  - HYPOCALCAEMIA [None]
  - IMPAIRED HEALING [None]
  - INTERVERTEBRAL DISC OPERATION [None]
  - INTERVERTEBRAL DISC PROTRUSION [None]
  - JOINT INJURY [None]
  - LIMB DISCOMFORT [None]
  - LUMBAR SPINAL STENOSIS [None]
  - MUSCULAR WEAKNESS [None]
  - OEDEMA [None]
  - ORAL PAIN [None]
  - OROPHARYNGEAL BLISTERING [None]
  - OSTEITIS [None]
  - OSTEOLYSIS [None]
  - OSTEONECROSIS [None]
  - OSTEOPENIA [None]
  - OSTEOPOROSIS [None]
  - PAIN IN JAW [None]
  - PANCYTOPENIA [None]
  - PERIODONTAL DISEASE [None]
  - PLASMACYTOSIS [None]
  - PRIMARY SEQUESTRUM [None]
  - RADICULAR PAIN [None]
  - RENAL FAILURE [None]
  - SALIVARY GLAND DISORDER [None]
  - SEQUESTRECTOMY [None]
  - TOOTH DISORDER [None]
